FAERS Safety Report 8359453-9 (Version None)
Quarter: 2012Q2

REPORT INFORMATION
  Report Type: 
  Country: None (occurrence: None)
  Receive Date: 20120515
  Receipt Date: 20120508
  Transmission Date: 20120825
  Serious: Yes (Other)
  Sender: FDA-Public Use
  Company Number: JP-ACCORD-008122

PATIENT
  Age: 69 Year
  Sex: Female

DRUGS (4)
  1. PAMIDRONATE DISODIUM [Concomitant]
     Indication: BREAST CANCER
     Dosage: EVERY 4 WEEKS
  2. MORPHINE [Concomitant]
     Indication: PAIN
  3. ZOLEDRONOC ACID [Concomitant]
     Indication: BREAST CANCER
     Dosage: EVERY 4 WEEKS
     Dates: start: 20060801
  4. ANASTROZOLE [Suspect]
     Indication: BREAST CANCER
     Route: 048

REACTIONS (2)
  - DRUG RESISTANCE [None]
  - METASTASES TO LIVER [None]
